FAERS Safety Report 8476469-2 (Version None)
Quarter: 2012Q2

REPORT INFORMATION
  Report Type: 
  Country: None (occurrence: None)
  Receive Date: 20120628
  Receipt Date: 20120622
  Transmission Date: 20120825
  Serious: Yes (Life-Threatening, Hospitalization)
  Sender: FDA-Public Use
  Company Number: DE-CELGENEUS-062-CCAZA-12050273

PATIENT
  Age: 79 Year
  Sex: Male
  Weight: 73 kg

DRUGS (12)
  1. CITALOPRAM HYDROBROMIDE [Concomitant]
     Dosage: 20 MILLIGRAM
     Route: 048
  2. POTASSIUM CHLORIDE [Concomitant]
     Indication: PROPHYLAXIS
     Dosage: 40MVAL
     Route: 041
     Dates: start: 20120502, end: 20120502
  3. AZACITIDINE [Suspect]
     Dosage: 75 MILLIGRAM/SQ. METER
     Route: 058
     Dates: start: 20120425, end: 20120501
  4. AGGRENOX [Concomitant]
     Indication: PROPHYLAXIS
     Dosage: 450 MILLIGRAM
     Route: 048
     Dates: end: 20120502
  5. ALLOPURINOL [Concomitant]
     Dosage: 100 MILLIGRAM
     Route: 048
     Dates: start: 20120404
  6. METOPROLOL SUCCINATE [Concomitant]
     Dosage: 47.5 MILLIGRAM
     Route: 048
  7. PARACODIN BITARTRATE TAB [Concomitant]
     Indication: COUGH
     Dosage: 20 DROPS
     Route: 048
     Dates: start: 20120501, end: 20120501
  8. VALSARTAN [Concomitant]
     Dosage: 172.5 MILLIGRAM
     Route: 048
  9. AMLODIPINE [Concomitant]
     Dosage: 10 MILLIGRAM
     Route: 048
  10. PANTOPRAZOLE [Concomitant]
     Indication: NAUSEA
     Dosage: 40 MILLIGRAM
     Route: 048
     Dates: start: 20120430
  11. SIMVASTATIN [Concomitant]
     Dosage: 40 MILLIGRAM
     Route: 048
     Dates: end: 20120502
  12. TAMSULOSIN HCL [Concomitant]
     Dosage: .4 MILLIGRAM
     Route: 048

REACTIONS (3)
  - RENAL FAILURE [None]
  - HAEMOLYTIC URAEMIC SYNDROME [None]
  - PNEUMONIA [None]
